FAERS Safety Report 4373819-3 (Version None)
Quarter: 2004Q1

REPORT INFORMATION
  Report Type: 
  Country: None (occurrence: None)
  Receive Date: 20040305
  Receipt Date: 20040129
  Transmission Date: 20041129
  Serious: Yes (Other)
  Sender: FDA-Public Use
  Company Number: 2003UW16521

PATIENT
  Age: 77 Year
  Sex: Male
  Weight: 105.2345 kg

DRUGS (4)
  1. CRESTOR [Suspect]
     Indication: HYPERCHOLESTEROLAEMIA
     Dosage: 10 MG QD PO
     Route: 048
     Dates: start: 20031201
  2. LUPRON [Concomitant]
  3. AZITHROMAX [Concomitant]
  4. LEVOXINE [Concomitant]

REACTIONS (6)
  - ABDOMINAL DISTENSION [None]
  - BLOOD PRESSURE INCREASED [None]
  - DIZZINESS [None]
  - FLATULENCE [None]
  - NAUSEA [None]
  - VOMITING [None]
